FAERS Safety Report 17293308 (Version 1)
Quarter: 2020Q1

REPORT INFORMATION
  Report Type: Spontaneous
  Country: US (occurrence: US)
  Receive Date: 20200102
  Receipt Date: 20200102
  Transmission Date: 20200409
  Serious: No
  Sender: FDA-Public Use
  Company Number: None

PATIENT
  Age: 78 Year
  Sex: Male

DRUGS (3)
  1. JADENU [Suspect]
     Active Substance: DEFERASIROX
     Indication: HAEMOCHROMATOSIS
     Route: 048
  2. JADENU [Suspect]
     Active Substance: DEFERASIROX
     Indication: ILEOSTOMY
  3. JADENU [Suspect]
     Active Substance: DEFERASIROX
     Indication: ILEOSTOMY

REACTIONS (2)
  - Non-Hodgkin^s lymphoma [None]
  - Diarrhoea [None]

NARRATIVE: CASE EVENT DATE: 20191230
